FAERS Safety Report 6308461-8 (Version None)
Quarter: 2009Q3

REPORT INFORMATION
  Report Type: 
  Country: None (occurrence: None)
  Receive Date: 20090813
  Receipt Date: 20090807
  Transmission Date: 20100115
  Serious: Yes (Hospitalization, Other)
  Sender: FDA-Public Use
  Company Number: PHHY2009JP16024

PATIENT
  Sex: Female

DRUGS (8)
  1. TEGRETOL [Suspect]
     Indication: EPILEPSY
     Dosage: 100 MG/DAY
     Route: 048
     Dates: start: 20081220, end: 20090317
  2. NATEGLINIDE [Concomitant]
     Dosage: 90 MG, UNK
     Route: 048
  3. DOGMATYL [Concomitant]
     Dosage: 100 MG, UNK
     Route: 048
     Dates: start: 20090201, end: 20090315
  4. PURSENNID                               /SCH/ [Concomitant]
     Dosage: 24 MG, UNK
     Route: 048
  5. DAI-KENCHU-TO [Concomitant]
     Route: 048
  6. NOVORAPID MIX [Concomitant]
     Dosage: 16 IU, UNK
     Route: 058
  7. NOVORAPID MIX [Concomitant]
     Dosage: 16 IU, UNK
     Route: 058
  8. PRIMPERAN [Concomitant]
     Dosage: 15 MG, UNK
     Route: 048
     Dates: start: 20090201, end: 20090315

REACTIONS (13)
  - ALOPECIA AREATA [None]
  - ALOPECIA TOTALIS [None]
  - ANGIOEDEMA [None]
  - DYSGEUSIA [None]
  - ERYTHEMA [None]
  - FACE OEDEMA [None]
  - NAUSEA [None]
  - OROPHARYNGEAL PAIN [None]
  - PHARYNGEAL OEDEMA [None]
  - PRURITUS [None]
  - RASH GENERALISED [None]
  - TOXIC SKIN ERUPTION [None]
  - VOMITING [None]
